FAERS Safety Report 5173183-6 (Version None)
Quarter: 2006Q4

REPORT INFORMATION
  Report Type: 
  Country: None (occurrence: None)
  Receive Date: 20061205
  Receipt Date: 20061120
  Transmission Date: 20070319
  Serious: Yes (Other)
  Sender: FDA-Public Use
  Company Number: 2006-05880

PATIENT
  Age: 21 Year
  Sex: Male

DRUGS (1)
  1. OXYTROL [Suspect]
     Indication: ENURESIS
     Dosage: 15 MG, DAILY

REACTIONS (1)
  - PSYCHOTIC DISORDER [None]
